FAERS Safety Report 14425475 (Version 1)
Quarter: 2018Q1

REPORT INFORMATION
  Report Type: Spontaneous
  Country: US (occurrence: US)
  Receive Date: 20180122
  Receipt Date: 20180122
  Transmission Date: 20180509
  Serious: Yes (Hospitalization)
  Sender: FDA-Public Use
  Company Number: None

PATIENT
  Age: 7 Month
  Sex: Male
  Weight: 9.07 kg

DRUGS (2)
  1. OCTREOTIDE ACET 200MCG/ML [Suspect]
     Active Substance: OCTREOTIDE ACETATE
     Indication: HYPOGLYCAEMIA
     Dates: start: 20171103
  2. OCTREOTIDE ACET 200MCG/ML [Suspect]
     Active Substance: OCTREOTIDE ACETATE
     Indication: HYPERINSULINAEMIA
     Dates: start: 20171103

REACTIONS (1)
  - Injection site rash [None]

NARRATIVE: CASE EVENT DATE: 20180117
